FAERS Safety Report 10958544 (Version 1)
Quarter: 2015Q1

REPORT INFORMATION
  Report Type: Spontaneous
  Country: US (occurrence: US)
  Receive Date: 20150326
  Receipt Date: 20150326
  Transmission Date: 20150721
  Serious: No
  Sender: FDA-Public Use
  Company Number: US-GLAXOSMITHKLINE-US2015GSK039544

PATIENT
  Sex: Female
  Weight: 82.86 kg

DRUGS (4)
  1. VENTOLIN HFA [Suspect]
     Active Substance: ALBUTEROL SULFATE
     Indication: PRODUCT USED FOR UNKNOWN INDICATION
     Dosage: UNK UNK, PRN
     Route: 055
  2. PANTOPRAZOLE SODIUM [Concomitant]
     Active Substance: PANTOPRAZOLE SODIUM
  3. MONTELUKAST SODIUM. [Concomitant]
     Active Substance: MONTELUKAST SODIUM
  4. FLUOXETINE HYDROCHLORIDE. [Concomitant]
     Active Substance: FLUOXETINE HYDROCHLORIDE

REACTIONS (10)
  - Ovarian cyst [Unknown]
  - Depression [Unknown]
  - Abdominal pain [Unknown]
  - White blood cell count increased [Unknown]
  - Restless legs syndrome [Unknown]
  - Migraine [Unknown]
  - Fatigue [Unknown]
  - Back pain [Unknown]
  - Anxiety [Unknown]
  - Hyperhidrosis [Unknown]
